FAERS Safety Report 7235291-5 (Version None)
Quarter: 2011Q1

REPORT INFORMATION
  Report Type: 
  Country: None (occurrence: None)
  Receive Date: 20110120
  Receipt Date: 20110115
  Transmission Date: 20110831
  Serious: Yes (Life-Threatening, Hospitalization)
  Sender: FDA-Public Use
  Company Number: JP-BRACCO-004275

PATIENT
  Sex: Female
  Weight: 36 kg

DRUGS (5)
  1. IOPAMIDOL [Suspect]
     Indication: COMPUTERISED TOMOGRAM
     Route: 042
     Dates: start: 20101025, end: 20101025
  2. IOPAMIDOL [Suspect]
     Indication: ISCHAEMIA
     Route: 042
     Dates: start: 20101025, end: 20101025
  3. IOPAMIDOL [Suspect]
     Indication: GANGRENE
     Route: 042
     Dates: start: 20101025, end: 20101025
  4. IOPAMIDOL [Concomitant]
     Dates: start: 20100401, end: 20100401
  5. CONTRAST MEDIA [Concomitant]
     Indication: COMPUTERISED TOMOGRAM
     Dates: start: 20080101, end: 20080101

REACTIONS (1)
  - ANAPHYLACTIC SHOCK [None]
